FAERS Safety Report 5115063-8 (Version None)
Quarter: 2006Q3

REPORT INFORMATION
  Report Type: 
  Country: None (occurrence: None)
  Receive Date: 20060925
  Receipt Date: 20060925
  Transmission Date: 20061208
  Serious: Yes (Other)
  Sender: FDA-Public Use
  Company Number: None

PATIENT
  Age: 23 Year
  Sex: Female
  Weight: 63.05 kg

DRUGS (6)
  1. EFFEXOR XR [Suspect]
     Indication: ANXIETY
     Dosage: 300 MG   DAILY   PO
     Route: 048
     Dates: start: 20030101, end: 20060918
  2. EFFEXOR XR [Suspect]
     Indication: DEPRESSION
     Dosage: 300 MG   DAILY   PO
     Route: 048
     Dates: start: 20030101, end: 20060918
  3. DEPAKOTE [Concomitant]
  4. SEROQUEL [Concomitant]
  5. WELLBUTRIN [Concomitant]
  6. ORTHO TRI-CYCLEN [Concomitant]

REACTIONS (13)
  - ABDOMINAL PAIN [None]
  - ASTHENIA [None]
  - CRYING [None]
  - DIZZINESS [None]
  - DRUG WITHDRAWAL SYNDROME [None]
  - FEELING ABNORMAL [None]
  - FEMALE SEXUAL AROUSAL DISORDER [None]
  - INADEQUATE LUBRICATION [None]
  - LOSS OF LIBIDO [None]
  - MOOD SWINGS [None]
  - NEUROSIS [None]
  - PARAESTHESIA [None]
  - SUICIDAL IDEATION [None]
